FAERS Safety Report 5351247-1 (Version None)
Quarter: 2007Q2

REPORT INFORMATION
  Report Type: 
  Country: None (occurrence: None)
  Receive Date: 20070608
  Receipt Date: 20070525
  Transmission Date: 20071010
  Serious: Yes (Hospitalization)
  Sender: FDA-Public Use
  Company Number: FR-GENENTECH-221756

PATIENT
  Age: 70 Year
  Sex: Male
  Weight: 84 kg

DRUGS (2)
  1. AVASTIN [Suspect]
     Indication: DRUG USE FOR UNKNOWN INDICATION
     Dosage: 800 MG, 2/MONTH
     Route: 042
     Dates: start: 20051024, end: 20051108
  2. INTRON A [Suspect]
     Indication: DRUG USE FOR UNKNOWN INDICATION
     Dosage: 6 MIU, 3/WEEK
     Route: 058
     Dates: start: 20050315, end: 20050915

REACTIONS (4)
  - BLOOD LACTATE DEHYDROGENASE INCREASED [None]
  - HYPERTENSION [None]
  - OEDEMA PERIPHERAL [None]
  - RENAL FAILURE ACUTE [None]
